FAERS Safety Report 4361938-7 (Version None)
Quarter: 2004Q2

REPORT INFORMATION
  Report Type: 
  Country: None (occurrence: None)
  Receive Date: 20040521
  Receipt Date: 20040202
  Transmission Date: 20050107
  Serious: No
  Sender: FDA-Public Use
  Company Number: US-GLAXOSMITHKLINE-A0496903A

PATIENT

DRUGS (2)
  1. WELLBUTRIN XL [Suspect]
     Indication: ILL-DEFINED DISORDER
     Route: 048
  2. WELLBUTRIN SR [Suspect]
     Indication: ILL-DEFINED DISORDER
     Route: 048

REACTIONS (3)
  - ADVERSE EVENT [None]
  - APATHY [None]
  - SEXUAL DYSFUNCTION [None]
